FAERS Safety Report 21854014 (Version 2)
Quarter: 2023Q1

REPORT INFORMATION
  Report Type: Spontaneous
  Country: TW (occurrence: TW)
  Receive Date: 20230112
  Receipt Date: 20230124
  Transmission Date: 20230417
  Serious: Yes (Life-Threatening, Hospitalization, Other)
  Sender: FDA-Public Use
  Company Number: TW-PFIZER INC-PV202300004560

PATIENT
  Age: 41 Year
  Sex: Female

DRUGS (32)
  1. PAXLOVID [Interacting]
     Active Substance: NIRMATRELVIR\RITONAVIR
     Indication: COVID-19 treatment
     Dosage: 1 DOSE, (RITONAVIR 100 MG AND NIRMATRELVIR 150 MG) EVERY 12 H
     Dates: start: 20220602
  2. PAXLOVID [Interacting]
     Active Substance: NIRMATRELVIR\RITONAVIR
     Dosage: 2 DOSES, (RITONAVIR 100 MG AND NIRMATRELVIR 150 MG) EVERY 12 H
     Dates: start: 20220603
  3. PAXLOVID [Interacting]
     Active Substance: NIRMATRELVIR\RITONAVIR
     Dosage: 2 DOSES, (RITONAVIR 100 MG AND NIRMATRELVIR 150 MG) EVERY 12 H
     Dates: start: 20220604
  4. PAXLOVID [Interacting]
     Active Substance: NIRMATRELVIR\RITONAVIR
     Dosage: 2 DOSES, (RITONAVIR 100 MG AND NIRMATRELVIR 150 MG) EVERY 12 H
     Dates: start: 20220605
  5. PAXLOVID [Interacting]
     Active Substance: NIRMATRELVIR\RITONAVIR
     Dosage: 2 DOSES, (RITONAVIR 100 MG AND NIRMATRELVIR 150 MG) EVERY 12 H
     Dates: start: 20220606
  6. PAXLOVID [Interacting]
     Active Substance: NIRMATRELVIR\RITONAVIR
     Dosage: 1 DOSE, (RITONAVIR 100 MG AND NIRMATRELVIR 150 MG) EVERY 12 H
     Dates: start: 20220607
  7. CLOZAPINE [Interacting]
     Active Substance: CLOZAPINE
     Indication: Schizophrenia
     Dosage: 250 MG, 1X/DAY
     Dates: start: 20220530
  8. CLOZAPINE [Interacting]
     Active Substance: CLOZAPINE
     Dosage: 275 MG, 1X/DAY
     Dates: start: 20220601
  9. CLOZAPINE [Interacting]
     Active Substance: CLOZAPINE
     Dosage: 175 MG, 1X/DAY
     Dates: start: 20220602
  10. CLOZAPINE [Interacting]
     Active Substance: CLOZAPINE
     Dosage: 100 MG, 1X/DAY
     Dates: start: 20220603
  11. CLOZAPINE [Interacting]
     Active Substance: CLOZAPINE
     Dosage: 100 MG, 1X/DAY
     Dates: start: 20220604
  12. CLOZAPINE [Interacting]
     Active Substance: CLOZAPINE
     Dosage: 125 MG, 1X/DAY
     Dates: start: 20220613
  13. CLOZAPINE [Interacting]
     Active Substance: CLOZAPINE
     Dosage: 150 MG, 1X/DAY
     Dates: start: 20220620
  14. CLOZAPINE [Interacting]
     Active Substance: CLOZAPINE
     Dosage: 150 MG,1X/DAY
     Dates: start: 20220626
  15. FLUVOXAMINE [Suspect]
     Active Substance: FLUVOXAMINE
     Indication: Schizophrenia
     Dosage: 50 MG, 1X/DAY
     Dates: start: 20220530
  16. FLUVOXAMINE [Suspect]
     Active Substance: FLUVOXAMINE
     Dosage: 50 MG, 1X/DAY
     Dates: start: 20220601
  17. FLUVOXAMINE [Suspect]
     Active Substance: FLUVOXAMINE
     Dosage: 50 MG, 1X/DAY
     Dates: start: 20220620
  18. FLUVOXAMINE [Suspect]
     Active Substance: FLUVOXAMINE
     Dosage: 50 MG, 1X/DAY
     Dates: start: 20220626
  19. VALPROIC ACID [Suspect]
     Active Substance: VALPROIC ACID
     Indication: Schizophrenia
     Dosage: 1500 MG, 1X/DAY
     Dates: start: 20220530
  20. VALPROIC ACID [Suspect]
     Active Substance: VALPROIC ACID
     Dosage: 1500 MG, 1X/DAY
     Dates: start: 20220601
  21. VALPROIC ACID [Suspect]
     Active Substance: VALPROIC ACID
     Dosage: 1000 MG, 1X/DAY
     Dates: start: 20220602
  22. VALPROIC ACID [Suspect]
     Active Substance: VALPROIC ACID
     Dosage: 1000 MG, 1X/DAY
     Dates: start: 20220603
  23. VALPROIC ACID [Suspect]
     Active Substance: VALPROIC ACID
     Dosage: 1000 MG, 1X/DAY
     Dates: start: 20220604
  24. VALPROIC ACID [Suspect]
     Active Substance: VALPROIC ACID
     Dosage: 1000 MG, 1X/DAY
     Dates: start: 20220605
  25. VALPROIC ACID [Suspect]
     Active Substance: VALPROIC ACID
     Dosage: 500 MG, 1X/DAY
     Dates: start: 20220606
  26. VALPROIC ACID [Suspect]
     Active Substance: VALPROIC ACID
     Dosage: 500 MG, 1X/DAY
     Dates: start: 20220607
  27. VALPROIC ACID [Suspect]
     Active Substance: VALPROIC ACID
     Dosage: 500 MG, 1X/DAY
     Dates: start: 20220608
  28. VALPROIC ACID [Suspect]
     Active Substance: VALPROIC ACID
     Dosage: 1000 MG, 1X/DAY
     Dates: start: 20220613
  29. VALPROIC ACID [Suspect]
     Active Substance: VALPROIC ACID
     Dosage: 1200 MG, 1X/DAY
     Dates: start: 20220620
  30. VALPROIC ACID [Suspect]
     Active Substance: VALPROIC ACID
     Dosage: 1200 MG, 1X/DAY
     Dates: start: 20220626
  31. PALIPERIDONE [Suspect]
     Active Substance: PALIPERIDONE
     Indication: Schizophrenia
     Dosage: 525 MG, EVERY 3 MONTHS
  32. HALOPERIDOL [Suspect]
     Active Substance: HALOPERIDOL
     Indication: Schizophrenia
     Dosage: UNK

REACTIONS (2)
  - Neutropenia [Unknown]
  - Drug interaction [Unknown]
